FAERS Safety Report 19308738 (Version 1)
Quarter: 2021Q2

REPORT INFORMATION
  Report Type: Spontaneous
  Country: US (occurrence: US)
  Receive Date: 20210526
  Receipt Date: 20210526
  Transmission Date: 20210717
  Serious: No
  Sender: FDA-Public Use
  Company Number: None

PATIENT
  Sex: Female

DRUGS (2)
  1. FISH OIL [Suspect]
     Active Substance: FISH OIL
  2. LOTEMAX [Suspect]
     Active Substance: LOTEPREDNOL ETABONATE

REACTIONS (1)
  - Treatment failure [None]
